FAERS Safety Report 4801152-1 (Version None)
Quarter: 2005Q4

REPORT INFORMATION
  Report Type: 
  Country: None (occurrence: None)
  Receive Date: 20051017
  Receipt Date: 20050916
  Transmission Date: 20060501
  Serious: Yes (Hospitalization)
  Sender: FDA-Public Use
  Company Number: PHHO2005KR14603

PATIENT
  Age: 36 Year
  Sex: Male
  Weight: 77 kg

DRUGS (2)
  1. MYFORTIC [Suspect]
     Indication: RENAL TRANSPLANT
     Dosage: 720 MG, BID
     Route: 048
     Dates: start: 20050509, end: 20050627
  2. SANDIMMUNE [Concomitant]
     Indication: RENAL TRANSPLANT
     Dosage: 300 MG, BID
     Route: 048
     Dates: start: 20050509

REACTIONS (6)
  - BLOOD CREATININE INCREASED [None]
  - CYTOMEGALOVIRUS ANTIGEN POSITIVE [None]
  - DIARRHOEA [None]
  - NAUSEA [None]
  - VOMITING [None]
  - WEIGHT DECREASED [None]
